FAERS Safety Report 8789090 (Version 3)
Quarter: 2013Q1

REPORT INFORMATION
  Report Type: Spontaneous
  Country: US (occurrence: US)
  Receive Date: 20120917
  Receipt Date: 20130123
  Transmission Date: 20140127
  Serious: No
  Sender: FDA-Public Use
  Company Number: US-009507513-1209USA004373

PATIENT
  Age: 42 Year
  Sex: Female

DRUGS (4)
  1. PEGINTRON [Suspect]
     Indication: HEPATITIS C
     Dosage: 120 MICROGRAM, QW
     Route: 058
     Dates: start: 20120806
  2. REBETOL [Suspect]
     Dosage: UNK
     Dates: start: 20120810
  3. CELEXA [Concomitant]
     Dosage: UNK
  4. ATIVAN [Concomitant]
     Dosage: UNK

REACTIONS (22)
  - Sinus disorder [Unknown]
  - Pain [Recovering/Resolving]
  - Headache [Recovering/Resolving]
  - Myalgia [Recovering/Resolving]
  - Nausea [Recovering/Resolving]
  - Decreased appetite [Recovering/Resolving]
  - Irritability [Recovering/Resolving]
  - Product quality issue [Unknown]
  - Headache [Unknown]
  - Vision blurred [Unknown]
  - Flushing [Unknown]
  - Arthralgia [Unknown]
  - Myalgia [Unknown]
  - Musculoskeletal disorder [Unknown]
  - Back pain [Unknown]
  - White blood cell count decreased [Unknown]
  - Red blood cell count decreased [Unknown]
  - Vision blurred [Unknown]
  - Chest pain [Unknown]
  - Dyspnoea [Unknown]
  - Stomatitis [Unknown]
  - Oral pain [Unknown]
